FAERS Safety Report 4805815-3 (Version None)
Quarter: 2005Q4

REPORT INFORMATION
  Report Type: 
  Country: None (occurrence: None)
  Receive Date: 20051021
  Receipt Date: 20051018
  Transmission Date: 20060501
  Serious: Yes (Death)
  Sender: FDA-Public Use
  Company Number: US-JNJFOC-20050704362

PATIENT
  Sex: Male
  Weight: 108.64 kg

DRUGS (4)
  1. RISPERDAL CONSTA [Suspect]
     Route: 030
  2. RISPERDAL CONSTA [Suspect]
     Indication: SCHIZOAFFECTIVE DISORDER
     Route: 030
  3. LEXAPRO [Concomitant]
     Indication: SCHIZOAFFECTIVE DISORDER
  4. TRILEPTAL [Concomitant]
     Indication: SCHIZOAFFECTIVE DISORDER

REACTIONS (2)
  - CHOLELITHIASIS [None]
  - HEAT STROKE [None]
